FAERS Safety Report 20443447 (Version 1)
Quarter: 2022Q1

REPORT INFORMATION
  Report Type: Spontaneous
  Country: US (occurrence: None)
  Receive Date: 20220207
  Receipt Date: 20220207
  Transmission Date: 20220423
  Serious: Yes (Death)
  Sender: FDA-Public Use
  Company Number: None

PATIENT
  Age: 88 Year
  Sex: Male

DRUGS (1)
  1. HUMATROPE [Suspect]
     Active Substance: SOMATROPIN
     Dosage: 0.25MG DAILY SUBCUTANEOUS?
     Route: 058
     Dates: start: 202201, end: 202202

REACTIONS (1)
  - Death [None]

NARRATIVE: CASE EVENT DATE: 20220201
